FAERS Safety Report 7970860-6 (Version None)
Quarter: 2011Q4

REPORT INFORMATION
  Report Type: 
  Country: None (occurrence: None)
  Receive Date: 20111212
  Receipt Date: 20111202
  Transmission Date: 20120403
  Serious: Yes (Life-Threatening, Hospitalization)
  Sender: FDA-Public Use
  Company Number: IN-VIIV HEALTHCARE LIMITED-B0732267A

PATIENT
  Sex: Male
  Weight: 53 kg

DRUGS (4)
  1. LAMIVUDINE(PEPFAR) [Suspect]
     Indication: PROPHYLAXIS AGAINST HIV INFECTION
     Route: 048
     Dates: start: 20100317
  2. MULTI-VITAMIN [Concomitant]
     Dates: start: 20110530
  3. ZIDOVUDINE [Suspect]
     Indication: PROPHYLAXIS AGAINST HIV INFECTION
     Route: 048
     Dates: start: 20100317
  4. EFAVIRENZ [Suspect]
     Indication: PROPHYLAXIS AGAINST HIV INFECTION
     Dosage: 600MG AT NIGHT
     Route: 048
     Dates: start: 20100317

REACTIONS (1)
  - DIABETES MELLITUS [None]
